FAERS Safety Report 17680403 (Version 3)
Quarter: 2020Q4

REPORT INFORMATION
  Report Type: Spontaneous
  Country: US (occurrence: US)
  Receive Date: 20200417
  Receipt Date: 20201118
  Transmission Date: 20210113
  Serious: Yes (Other)
  Sender: FDA-Public Use
  Company Number: US-ASTRAZENECA-2019SE10584

PATIENT
  Sex: Male
  Weight: 82.6 kg

DRUGS (12)
  1. ALEVE [Concomitant]
     Active Substance: NAPROXEN SODIUM
  2. PRILOSEC OTC [Suspect]
     Active Substance: OMEPRAZOLE MAGNESIUM
     Indication: OESOPHAGEAL DISORDER
     Dosage: FOR VARIOUS DATES AND YEARS BEGINNING AT LEAST IN OR AROUND 2011
     Route: 048
     Dates: start: 2011
  3. PRILOSEC OTC [Suspect]
     Active Substance: OMEPRAZOLE MAGNESIUM
     Indication: GASTROOESOPHAGEAL REFLUX DISEASE
     Dosage: GENERIC
     Route: 065
     Dates: start: 20180523
  4. PRILOSEC [Suspect]
     Active Substance: OMEPRAZOLE MAGNESIUM
     Indication: OESOPHAGEAL DISORDER
     Route: 048
     Dates: start: 20160520
  5. ALLOPURINOL. [Concomitant]
     Active Substance: ALLOPURINOL
  6. CIALIS [Concomitant]
     Active Substance: TADALAFIL
  7. WARFARIN [Concomitant]
     Active Substance: WARFARIN
  8. LISINOPRIL/HYDROCHLORTHIAZIDE [Concomitant]
     Active Substance: HYDROCHLOROTHIAZIDE\LISINOPRIL
  9. METROGEL [Concomitant]
     Active Substance: METRONIDAZOLE
  10. PRILOSEC OTC [Suspect]
     Active Substance: OMEPRAZOLE MAGNESIUM
     Indication: GASTROOESOPHAGEAL REFLUX DISEASE
     Dosage: FOR VARIOUS DATES AND YEARS BEGINNING AT LEAST IN OR AROUND 2011
     Route: 048
     Dates: start: 2011
  11. PRILOSEC OTC [Suspect]
     Active Substance: OMEPRAZOLE MAGNESIUM
     Indication: OESOPHAGEAL DISORDER
     Dosage: GENERIC
     Route: 065
     Dates: start: 20180523
  12. BENADRYL [Concomitant]
     Active Substance: DIPHENHYDRAMINE HYDROCHLORIDE

REACTIONS (4)
  - Renal injury [Unknown]
  - Rebound acid hypersecretion [Unknown]
  - Renal failure [Unknown]
  - Chronic kidney disease [Not Recovered/Not Resolved]
